FAERS Safety Report 8881964 (Version 1)
Quarter: 2012Q4

REPORT INFORMATION
  Report Type: 
  Country: GB (occurrence: GB)
  Receive Date: 20121101
  Receipt Date: 20121101
  Transmission Date: 20130627
  Serious: Yes (Other)
  Sender: FDA-Public Use
  Company Number: PHHY2012GB097206

PATIENT
  Sex: Female

DRUGS (4)
  1. SIMVASTATINE [Suspect]
     Indication: HYPOTHYROIDISM
     Dates: end: 20121003
  2. LIOTHYRONINE SODIUM [Concomitant]
  3. ALDACTONE [Concomitant]
  4. METFORMIN [Concomitant]

REACTIONS (3)
  - Interstitial lung disease [Unknown]
  - Pleuritic pain [Unknown]
  - Chest X-ray abnormal [Unknown]
